FAERS Safety Report 7961199-3 (Version None)
Quarter: 2011Q4

REPORT INFORMATION
  Report Type: 
  Country: None (occurrence: None)
  Receive Date: 20111202
  Receipt Date: 20111117
  Transmission Date: 20120403
  Serious: Yes (Hospitalization, Other)
  Sender: FDA-Public Use
  Company Number: CIP11001751

PATIENT
  Age: 67 Year
  Sex: Female

DRUGS (42)
  1. FOSAMAX [Suspect]
     Indication: OSTEOPOROSIS
     Dosage: 70 MG WEEKLY, ORAL ; 10 MG, ORAL
     Route: 048
     Dates: start: 19991119, end: 20020806
  2. FOSAMAX [Suspect]
     Indication: OSTEOPOROSIS
     Dosage: 70 MG WEEKLY, ORAL ; 10 MG, ORAL
     Route: 048
     Dates: start: 20001213
  3. DIPROLENE (BETAMETHASONE DIPROPIONATE) [Concomitant]
  4. ZOVIRAX /00587301/ (ACICLOVIR) [Concomitant]
  5. ALUMINIUM CHLORIDE (ALUMINIUM CHLORIDE) [Concomitant]
  6. ZITHROMAX [Concomitant]
  7. FLUCONAZOLE [Concomitant]
  8. CALCIUM CARBONATE [Concomitant]
  9. ACTONEL [Suspect]
     Dosage: 35 MG, ONCE A WEEK, ORAL
     Route: 048
     Dates: start: 20021030, end: 20080301
  10. LOPROX (CICLOPIROX OLAMINE) [Concomitant]
  11. TRAMADOL HCL [Concomitant]
  12. NASONEX [Concomitant]
  13. OXYCODONE AND ACETAMINOPHEN [Concomitant]
  14. PROMETHASONE - CODEINE /01129901/ (CODEINE PHOSPHATE, PROMETHAZINE HYD [Concomitant]
  15. TRAMADOL/APAP (PARACETAMOL, TRAMADOL HYDROCHLORIDE) [Concomitant]
  16. SKELAXIN /00611601/ (METAXALONE) [Concomitant]
  17. DICLOFENAC SODIUM [Concomitant]
  18. LOVENOX [Concomitant]
  19. CRANBERRY /01512301/ (VACCINIUM MACROCARPON) [Concomitant]
  20. MULTIVITAMIN /01229101/ (VITAMINS NOS) [Concomitant]
  21. ACTONEL [Suspect]
     Dosage: 30 MG,ORAL
     Route: 048
     Dates: start: 20021212, end: 20031006
  22. TRIAMCINOLONE [Concomitant]
  23. NITROFURANTOIN [Concomitant]
  24. MELOXICAM [Concomitant]
  25. CRESTOR [Concomitant]
  26. XALATAN /01297301/ (LATANOPROST) [Concomitant]
  27. NEXIUM /01479303/ (ESOMEPRAZOLE SODIUM) [Concomitant]
  28. ACULAR /01001802/ (KETOROLAC TROMETHAMINE) [Concomitant]
  29. FLUOXETINE HYDROCHLORIDE [Concomitant]
  30. BEXTRA /01401501/ (VALDECOXIB) [Concomitant]
  31. NABUMETONE [Concomitant]
  32. CELEBREX [Concomitant]
  33. PAXIL [Concomitant]
  34. NAPROXEN (ALEVE) [Concomitant]
  35. CLOTRIMAZOLE W/BETAMETHASONE DIPROPIONAT (BETAMETHASONE DIPROPIONATE, [Concomitant]
  36. ZOCOR [Concomitant]
  37. METHYLPREDNISOLONE [Concomitant]
  38. ACIPHEX [Concomitant]
  39. LEVAQUIN [Concomitant]
  40. LIDODERM [Concomitant]
  41. GLUCOSAMINE (GLUCOSAMINE) [Concomitant]
  42. ASPIRIN [Concomitant]

REACTIONS (24)
  - FOOT FRACTURE [None]
  - HYPERPARATHYROIDISM [None]
  - PARAESTHESIA [None]
  - RADICULOPATHY [None]
  - VERTEBRAL FORAMINAL STENOSIS [None]
  - STRESS FRACTURE [None]
  - JOINT RANGE OF MOTION DECREASED [None]
  - OSTEOARTHRITIS [None]
  - OSTEONECROSIS [None]
  - SYNOVIAL CYST [None]
  - FALL [None]
  - IMPAIRED HEALING [None]
  - COLLAGEN DISORDER [None]
  - BACK PAIN [None]
  - BUNION [None]
  - OSTEOCHONDROSIS [None]
  - ABDOMINAL DISCOMFORT [None]
  - FRACTURE DELAYED UNION [None]
  - GAIT DISTURBANCE [None]
  - FEMUR FRACTURE [None]
  - BONE METABOLISM DISORDER [None]
  - EXOSTOSIS [None]
  - FRACTURE NONUNION [None]
  - SPINAL COMPRESSION FRACTURE [None]
